FAERS Safety Report 13641457 (Version 1)
Quarter: 2017Q2

REPORT INFORMATION
  Report Type: Spontaneous
  Country: US (occurrence: US)
  Receive Date: 20170610
  Receipt Date: 20170610
  Transmission Date: 20170830
  Serious: Yes (Disabling)
  Sender: FDA-Public Use
  Company Number: None

PATIENT
  Age: 27 Year
  Sex: Female
  Weight: 54.9 kg

DRUGS (2)
  1. FLAGYL [Suspect]
     Active Substance: METRONIDAZOLE\METRONIDAZOLE HYDROCHLORIDE
     Indication: BACTERIAL VAGINOSIS
     Dosage: ?          QUANTITY:1 CAPSULE(S);?
     Route: 048
     Dates: start: 20170518, end: 20170524
  2. PROGESTERONE. [Concomitant]
     Active Substance: PROGESTERONE

REACTIONS (24)
  - Therapy cessation [None]
  - Hypoaesthesia [None]
  - Nausea [None]
  - Visual acuity reduced [None]
  - Back pain [None]
  - Photosensitivity reaction [None]
  - Depression [None]
  - Dizziness [None]
  - Headache [None]
  - Dry mouth [None]
  - Anxiety [None]
  - Decreased appetite [None]
  - Heart rate increased [None]
  - Muscular weakness [None]
  - Chest pain [None]
  - Vertigo [None]
  - Insomnia [None]
  - Abdominal pain [None]
  - Abdominal pain upper [None]
  - Abdominal distension [None]
  - Dysgeusia [None]
  - Vaginal discharge [None]
  - Musculoskeletal stiffness [None]
  - Chromaturia [None]

NARRATIVE: CASE EVENT DATE: 20170520
